FAERS Safety Report 10350171 (Version 1)
Quarter: 2014Q3

REPORT INFORMATION
  Report Type: Report from Study
  Country: US (occurrence: US)
  Receive Date: 20140730
  Receipt Date: 20140730
  Transmission Date: 20150326
  Serious: No
  Sender: FDA-Public Use
  Company Number: US-ABBVIE-13P-163-1133003-00

PATIENT
  Sex: Female

DRUGS (2)
  1. NIACIN. [Suspect]
     Active Substance: NIACIN
     Indication: LIPIDS ABNORMAL
  2. NIASPAN [Suspect]
     Active Substance: NIACIN
     Indication: LIPIDS ABNORMAL

REACTIONS (2)
  - Lipids abnormal [Recovered/Resolved]
  - Therapeutic response changed [Recovered/Resolved]
